FAERS Safety Report 15338953 (Version 1)
Quarter: 2018Q3

REPORT INFORMATION
  Report Type: Report from Study
  Country: None (occurrence: US)
  Receive Date: 20180831
  Receipt Date: 20180831
  Transmission Date: 20181010
  Serious: Yes (Hospitalization, Other)
  Sender: FDA-Public Use
  Company Number: US-ABBVIE-18K-163-2464643-00

PATIENT
  Sex: Male

DRUGS (1)
  1. HUMIRA [Suspect]
     Active Substance: ADALIMUMAB
     Indication: CROHN^S DISEASE
     Route: 058
     Dates: start: 2009

REACTIONS (11)
  - Gastrointestinal surgery [Unknown]
  - Postoperative adhesion [Unknown]
  - Weight decreased [Unknown]
  - Diarrhoea [Unknown]
  - Dyschezia [Unknown]
  - Aortic dissection [Unknown]
  - Nausea [Unknown]
  - Therapeutic response shortened [Unknown]
  - Pain [Unknown]
  - Intestinal obstruction [Unknown]
  - Raynaud^s phenomenon [Unknown]

NARRATIVE: CASE EVENT DATE: 2012
